FAERS Safety Report 7506071-8 (Version None)
Quarter: 2011Q2

REPORT INFORMATION
  Report Type: 
  Country: None (occurrence: None)
  Receive Date: 20110526
  Receipt Date: 20110520
  Transmission Date: 20111010
  Serious: Yes (Hospitalization)
  Sender: FDA-Public Use
  Company Number: DE-GENZYME-CAMP-1001604

PATIENT
  Sex: Female
  Weight: 84 kg

DRUGS (6)
  1. CAMPATH [Suspect]
     Indication: CHRONIC LYMPHOCYTIC LEUKAEMIA
     Dosage: 30 MG, Q2W
     Route: 058
     Dates: start: 20100105, end: 20110328
  2. VALACICLOVIR [Concomitant]
     Indication: PRODUCT USED FOR UNKNOWN INDICATION
     Dosage: UNK, 100-0-0
     Dates: start: 20100105
  3. COTRIM [Concomitant]
     Indication: PRODUCT USED FOR UNKNOWN INDICATION
     Dosage: 960 MG, TID, M W F
     Dates: start: 20100105
  4. LEVOTHYROXINE SODIUM [Concomitant]
     Indication: PRODUCT USED FOR UNKNOWN INDICATION
     Dosage: UNK, 100-0-0
     Dates: end: 20100101
  5. ALLOPURINOL [Concomitant]
     Indication: PRODUCT USED FOR UNKNOWN INDICATION
     Dosage: UNK, 100-0-0
     Dates: start: 20100105
  6. JODID [Concomitant]
     Indication: PRODUCT USED FOR UNKNOWN INDICATION
     Dosage: UNK,200-0-0
     Route: 065
     Dates: start: 19800101

REACTIONS (1)
  - DEEP VEIN THROMBOSIS [None]
